FAERS Safety Report 8117222-9 (Version None)
Quarter: 2012Q1

REPORT INFORMATION
  Report Type: 
  Country: None (occurrence: None)
  Receive Date: 20120206
  Receipt Date: 20120117
  Transmission Date: 20120608
  Serious: Yes (Hospitalization)
  Sender: FDA-Public Use
  Company Number: US-PFIZER INC-K200900464

PATIENT
  Age: 79 Year
  Sex: Male

DRUGS (11)
  1. LOSARTAN [Concomitant]
     Dosage: 50 MG, UNK
     Route: 048
     Dates: start: 20010101
  2. RAMIPRIL [Suspect]
     Dosage: UNK
     Route: 048
     Dates: start: 20010101, end: 20090120
  3. AMLODIPINE BESYLATE [Suspect]
     Dosage: UNK
     Route: 048
     Dates: start: 20010101, end: 20081224
  4. GLUCOPHAGE [Suspect]
     Dosage: UNK
     Route: 048
     Dates: start: 20090101
  5. RAMIPRIL [Suspect]
     Dosage: UNK
     Route: 048
     Dates: start: 20090101
  6. AMLODIPINE BESYLATE [Suspect]
     Dosage: UNK
     Route: 048
     Dates: start: 20090101
  7. KARDEGIC /00002703/ [Concomitant]
     Dosage: UNK, QD
     Dates: start: 20010101
  8. FLECAINIDE [Concomitant]
     Dosage: 200 MG, UNK
     Route: 048
     Dates: start: 20010101
  9. RILMENIDINE [Concomitant]
     Dosage: 2 MG, UNK
     Route: 048
     Dates: start: 20010101
  10. GLUCOPHAGE [Suspect]
     Indication: TYPE 2 DIABETES MELLITUS
     Dosage: 15 MG, 1X/DAY
     Route: 048
     Dates: start: 20010101, end: 20090120
  11. FINASTERIDE [Concomitant]
     Dosage: UNK
     Route: 048
     Dates: start: 20010101

REACTIONS (3)
  - DRY MOUTH [None]
  - PRURITUS GENERALISED [None]
  - DRY EYE [None]
